FAERS Safety Report 15554891 (Version 1)
Quarter: 2018Q4

REPORT INFORMATION
  Report Type: Spontaneous
  Country: US (occurrence: US)
  Receive Date: 20181022
  Receipt Date: 20181022
  Transmission Date: 20190205
  Serious: No
  Sender: FDA-Public Use
  Company Number: None

PATIENT
  Age: 72 Year
  Sex: Male

DRUGS (2)
  1. ELIQUIS [Concomitant]
     Active Substance: APIXABAN
  2. CAPECITABINE TAB 150MG [Suspect]
     Active Substance: CAPECITABINE
     Route: 048
     Dates: start: 20180707

REACTIONS (2)
  - Skin discolouration [None]
  - Skin exfoliation [None]

NARRATIVE: CASE EVENT DATE: 20181019
